FAERS Safety Report 4416929-4 (Version None)
Quarter: 2004Q3

REPORT INFORMATION
  Report Type: 
  Country: None (occurrence: None)
  Receive Date: 20040806
  Receipt Date: 20040804
  Transmission Date: 20050211
  Serious: Yes (Death)
  Sender: FDA-Public Use
  Company Number: GB-BRISTOL-MYERS SQUIBB COMPANY-12660858

PATIENT
  Age: 42 Year
  Sex: Male
  Weight: 80 kg

DRUGS (11)
  1. REYATAZ [Suspect]
     Indication: HIV INFECTION
     Route: 048
     Dates: start: 20040513
  2. ABACAVIR [Suspect]
     Indication: HIV INFECTION
     Route: 048
     Dates: start: 20040513
  3. RITONAVIR [Suspect]
     Indication: HIV INFECTION
     Route: 048
     Dates: start: 20040513
  4. EMTRICITABINE [Suspect]
     Indication: HIV INFECTION
     Route: 048
     Dates: start: 20040513
  5. RAMIPRIL [Concomitant]
     Indication: HYPERTENSION
     Route: 048
  6. ATORVASTATIN CALCIUM [Concomitant]
     Indication: HYPERLIPIDAEMIA
     Route: 048
     Dates: start: 20040630
  7. THYROXINE [Concomitant]
     Indication: HYPOTHYROIDISM
     Route: 048
  8. IRBESARTAN [Concomitant]
     Indication: HYPERTENSION
     Route: 048
  9. INSULIN [Concomitant]
     Indication: DIABETES MELLITUS
     Route: 058
  10. COTRIM [Concomitant]
     Indication: HIV INFECTION
     Route: 048
  11. ASPIRIN [Concomitant]
     Indication: CARDIOVASCULAR DISORDER
     Route: 048

REACTIONS (1)
  - SUDDEN DEATH [None]
